FAERS Safety Report 4555514-0 (Version None)
Quarter: 2005Q1

REPORT INFORMATION
  Report Type: 
  Country: None (occurrence: None)
  Receive Date: 20050118
  Receipt Date: 20050118
  Transmission Date: 20050727
  Serious: Yes (Other)
  Sender: FDA-Public Use
  Company Number: None

PATIENT
  Age: 72 Year
  Sex: Male
  Weight: 121.6 kg

DRUGS (1)
  1. CODEINE SUL TAB [Suspect]

REACTIONS (1)
  - CONSTIPATION [None]
